FAERS Safety Report 8544386-5 (Version None)
Quarter: 2012Q3

REPORT INFORMATION
  Report Type: 
  Country: None (occurrence: None)
  Receive Date: 20120727
  Receipt Date: 20120724
  Transmission Date: 20120928
  Serious: Yes (Death)
  Sender: FDA-Public Use
  Company Number: US-TEVA-345361USA

PATIENT
  Sex: Female

DRUGS (1)
  1. FLUDROCORTISONE ACETATE [Suspect]
     Indication: HYPOTENSION

REACTIONS (2)
  - OFF LABEL USE [None]
  - AORTIC DISSECTION [None]
